FAERS Safety Report 13900244 (Version 4)
Quarter: 2018Q1

REPORT INFORMATION
  Report Type: Report from Study
  Country: FR (occurrence: FR)
  Receive Date: 20170823
  Receipt Date: 20180119
  Transmission Date: 20180508
  Serious: Yes (Death, Hospitalization, Other)
  Sender: FDA-Public Use
  Company Number: FR-BRISTOL-MYERS SQUIBB COMPANY-BMS-2017-074846

PATIENT
  Age: 61 Year
  Sex: Female

DRUGS (2)
  1. INNOHEP [Concomitant]
     Active Substance: TINZAPARIN SODIUM
     Indication: PRODUCT USED FOR UNKNOWN INDICATION
     Dosage: UNK
     Route: 065
     Dates: start: 20170721, end: 20170802
  2. NIVOLUMAB [Suspect]
     Active Substance: NIVOLUMAB
     Indication: LUNG NEOPLASM MALIGNANT
     Dosage: 216 MG, EVERY 15 DATS
     Route: 042
     Dates: start: 20170731, end: 20170821

REACTIONS (8)
  - Decreased appetite [Fatal]
  - Malignant neoplasm progression [Fatal]
  - Nausea [Fatal]
  - Vomiting [Fatal]
  - Asthenia [Fatal]
  - Hypercalcaemia [Fatal]
  - Hyperkalaemia [Unknown]
  - Pain [Fatal]

NARRATIVE: CASE EVENT DATE: 20170803
